FAERS Safety Report 5420694-1 (Version None)
Quarter: 2007Q3

REPORT INFORMATION
  Report Type: 
  Country: None (occurrence: None)
  Receive Date: 20070821
  Receipt Date: 20070813
  Transmission Date: 20080115
  Serious: Yes (Hospitalization)
  Sender: FDA-Public Use
  Company Number: DE-BRISTOL-MYERS SQUIBB COMPANY-13879663

PATIENT
  Age: 55 Year
  Sex: Male

DRUGS (4)
  1. CETUXIMAB [Suspect]
     Indication: METASTATIC GASTRIC CANCER
     Dosage: LOADING DOSE: 400 MG/M2 ON 03 MAY 2007
     Route: 042
     Dates: start: 20070503
  2. IRINOTECAN HCL [Suspect]
     Indication: METASTATIC GASTRIC CANCER
     Route: 042
     Dates: start: 20070503
  3. FOLINIC ACID [Suspect]
     Indication: METASTATIC GASTRIC CANCER
     Route: 042
     Dates: start: 20070503
  4. FLUOROURACIL [Suspect]
     Indication: METASTATIC GASTRIC CANCER
     Route: 042
     Dates: start: 20070503

REACTIONS (1)
  - DEEP VEIN THROMBOSIS [None]
